FAERS Safety Report 14947695 (Version 2)
Quarter: 2018Q2

REPORT INFORMATION
  Report Type: Spontaneous
  Country: US (occurrence: US)
  Receive Date: 20180529
  Receipt Date: 20180614
  Transmission Date: 20180711
  Serious: Yes (Hospitalization, Other)
  Sender: FDA-Public Use
  Company Number: US-VIFOR (INTERNATIONAL) INC.-VIT-2018-04938

PATIENT
  Age: 81 Year
  Sex: Female
  Weight: 66.74 kg

DRUGS (19)
  1. METOPROLOL TARTRATE. [Concomitant]
     Active Substance: METOPROLOL TARTRATE
  2. FERROUS GLUCONATE [Concomitant]
     Active Substance: FERROUS GLUCONATE
  3. CARAFATE [Concomitant]
     Active Substance: SUCRALFATE
  4. SUCRALFATE. [Concomitant]
     Active Substance: SUCRALFATE
  5. NORVASC [Concomitant]
     Active Substance: AMLODIPINE BESYLATE
  6. NEXIUM [Concomitant]
     Active Substance: ESOMEPRAZOLE MAGNESIUM
  7. ACETYLSALICYLIC ACID [Concomitant]
     Active Substance: ASPIRIN
  8. AMARYL [Concomitant]
     Active Substance: GLIMEPIRIDE
  9. ACTOS [Concomitant]
     Active Substance: PIOGLITAZONE HYDROCHLORIDE
  10. IRON [Concomitant]
     Active Substance: IRON
  11. HYDROCHLOROTHIAZIDE. [Concomitant]
     Active Substance: HYDROCHLOROTHIAZIDE
  12. LISINOPRIL. [Concomitant]
     Active Substance: LISINOPRIL
  13. ZOCOR [Concomitant]
     Active Substance: SIMVASTATIN
  14. NORTRIPTYLINE HYDROCHLORIDE. [Concomitant]
     Active Substance: NORTRIPTYLINE HYDROCHLORIDE
  15. CITALOPRAM HYDROBROMIDE. [Concomitant]
     Active Substance: CITALOPRAM HYDROBROMIDE
  16. LIPITOR [Concomitant]
     Active Substance: ATORVASTATIN CALCIUM
  17. VELTASSA [Suspect]
     Active Substance: PATIROMER
     Indication: HYPERKALAEMIA
     Route: 048
     Dates: start: 20160802
  18. VITAMINS NOS [Concomitant]
     Active Substance: VITAMINS
  19. CLONAZEPAM. [Concomitant]
     Active Substance: CLONAZEPAM

REACTIONS (7)
  - Influenza [Recovered/Resolved]
  - Swollen tongue [Unknown]
  - Heart rate irregular [Recovered/Resolved]
  - Blood potassium increased [Recovered/Resolved]
  - Cardiac flutter [Recovered/Resolved]
  - Palpitations [Recovered/Resolved]
  - Cough [Recovered/Resolved]

NARRATIVE: CASE EVENT DATE: 20170101
